FAERS Safety Report 4974398-X (Version None)
Quarter: 2006Q2

REPORT INFORMATION
  Report Type: 
  Country: None (occurrence: None)
  Receive Date: 20060410
  Receipt Date: 20060324
  Transmission Date: 20061013
  Serious: Yes (Other)
  Sender: FDA-Public Use
  Company Number: TRP_0720_2006

PATIENT
  Age: 50 Year
  Sex: Female
  Weight: 90.7194 kg

DRUGS (5)
  1. RIBASPHERE [Suspect]
     Indication: HEPATITIS C
     Dosage: DF PO
     Route: 048
     Dates: start: 20060210
  2. PEG-INTRON [Suspect]
     Indication: HEPATITIS C
     Dosage: DF SC
     Route: 058
     Dates: start: 20060210
  3. PROZAC [Concomitant]
  4. CLONAZEPAM [Concomitant]
  5. METHADONE [Concomitant]

REACTIONS (8)
  - CONDITION AGGRAVATED [None]
  - DECREASED APPETITE [None]
  - DEPRESSION [None]
  - LOSS OF CONSCIOUSNESS [None]
  - NAUSEA [None]
  - SOCIAL AVOIDANT BEHAVIOUR [None]
  - SUDDEN ONSET OF SLEEP [None]
  - WEIGHT DECREASED [None]
